FAERS Safety Report 6023416-9 (Version None)
Quarter: 2008Q4

REPORT INFORMATION
  Report Type: 
  Country: None (occurrence: None)
  Receive Date: 20081226
  Receipt Date: 20081226
  Transmission Date: 20090506
  Serious: Yes (Life-Threatening, Hospitalization)
  Sender: FDA-Public Use
  Company Number: None

PATIENT
  Age: 64 Year
  Sex: Male
  Weight: 77.3 kg

DRUGS (1)
  1. DILTIAZEM [Suspect]
     Indication: HYPERTENSION
     Dosage: 240 MG EVERY DAY PO
     Route: 048
     Dates: start: 20080903, end: 20081123

REACTIONS (9)
  - BLOOD POTASSIUM INCREASED [None]
  - BRADYCARDIA [None]
  - BREATH HOLDING [None]
  - DEPRESSED LEVEL OF CONSCIOUSNESS [None]
  - ERYTHEMA [None]
  - HAEMOGLOBIN DECREASED [None]
  - NAUSEA [None]
  - SYNCOPE [None]
  - VOMITING [None]
